FAERS Safety Report 6264013-X (Version None)
Quarter: 2009Q3

REPORT INFORMATION
  Report Type: 
  Country: None (occurrence: None)
  Receive Date: 20090710
  Receipt Date: 20090701
  Transmission Date: 20100115
  Serious: Yes (Hospitalization)
  Sender: FDA-Public Use
  Company Number: TW-ASTRAZENECA-2009SE03825

PATIENT
  Age: 59 Year
  Sex: Female

DRUGS (6)
  1. QUETIAPINE FUMARATE [Suspect]
     Dosage: SHE GRADUALLY INCREASED THE DOSE FROM 800 TO 2400 MG/ DAY
     Route: 048
  2. QUETIAPINE FUMARATE [Suspect]
     Dosage: SOMETIMES SHE TOOK HIGHER DOSES
     Route: 048
  3. ZOLPIDEM [Suspect]
     Dates: start: 20070101
  4. CLONAZEPAM [Suspect]
     Dates: start: 20070101
  5. BENZODIAZEPINES [Concomitant]
  6. HYPNOTICS [Concomitant]

REACTIONS (4)
  - DRUG DEPENDENCE [None]
  - DRUG WITHDRAWAL SYNDROME [None]
  - INTENTIONAL DRUG MISUSE [None]
  - SUICIDAL BEHAVIOUR [None]
